FAERS Safety Report 10255443 (Version 2)
Quarter: 2014Q2

REPORT INFORMATION
  Report Type: Spontaneous
  Country: US (occurrence: US)
  Receive Date: 20140624
  Receipt Date: 20140627
  Transmission Date: 20141212
  Serious: No
  Sender: FDA-Public Use
  Company Number: US-PFIZER INC-2014171980

PATIENT
  Age: 67 Year
  Sex: Male
  Weight: 74.38 kg

DRUGS (2)
  1. VIAGRA [Suspect]
     Indication: ERECTILE DYSFUNCTION
     Dosage: 100 MG, AS NEEDED
     Dates: start: 1999
  2. COUMADIN [Concomitant]
     Indication: COAGULOPATHY
     Dosage: UNK

REACTIONS (1)
  - Drug effect incomplete [Unknown]
